FAERS Safety Report 20809751 (Version 1)
Quarter: 2022Q2

REPORT INFORMATION
  Report Type: Report from Study
  Country: US (occurrence: US)
  Receive Date: 20220510
  Receipt Date: 20220510
  Transmission Date: 20220721
  Serious: Yes (Other)
  Sender: FDA-Public Use
  Company Number: US-NOVARTISPH-NVSC2022US102791

PATIENT
  Sex: Female

DRUGS (2)
  1. COSENTYX [Suspect]
     Active Substance: SECUKINUMAB
     Indication: Psoriatic arthropathy
     Dosage: 150 MG, (FOR 2 YEARS)
     Route: 058
  2. COSENTYX [Suspect]
     Active Substance: SECUKINUMAB
     Dosage: 300 MG, (FOR 2 YEARS)
     Route: 058

REACTIONS (6)
  - Renal failure [Unknown]
  - Fall [Unknown]
  - Limb discomfort [Unknown]
  - Condition aggravated [Unknown]
  - Skin plaque [Unknown]
  - Drug ineffective [Unknown]
